FAERS Safety Report 15001128 (Version 2)
Quarter: 2018Q3

REPORT INFORMATION
  Report Type: Spontaneous
  Country: US (occurrence: US)
  Receive Date: 20180612
  Receipt Date: 20180802
  Transmission Date: 20181010
  Serious: Yes (Other)
  Sender: FDA-Public Use
  Company Number: US-BAYER-2018-107483

PATIENT
  Age: 44 Year
  Sex: Female

DRUGS (1)
  1. MIRENA [Suspect]
     Active Substance: LEVONORGESTREL
     Indication: CONTRACEPTION
     Dosage: 20 MCG/24HR, CONT
     Route: 015
     Dates: start: 20180305, end: 20180529

REACTIONS (5)
  - Device dislocation [None]
  - Post procedural discomfort [None]
  - Procedural pain [None]
  - Menorrhagia [Not Recovered/Not Resolved]
  - Abdominal pain lower [None]

NARRATIVE: CASE EVENT DATE: 201804
